FAERS Safety Report 6057297-4 (Version None)
Quarter: 2009Q1

REPORT INFORMATION
  Report Type: 
  Country: None (occurrence: None)
  Receive Date: 20090129
  Receipt Date: 20080815
  Transmission Date: 20090719
  Serious: No
  Sender: FDA-Public Use
  Company Number: A0742851A

PATIENT
  Age: 67 Year
  Sex: Male

DRUGS (5)
  1. WELLBUTRIN [Suspect]
     Indication: DEPRESSION
     Route: 048
  2. WELLBUTRIN XL [Suspect]
     Indication: DEPRESSION
     Dosage: 150MG PER DAY
     Route: 048
  3. VITAMINS [Concomitant]
  4. ALLEGRA [Concomitant]
  5. UROXATRAL [Concomitant]

REACTIONS (1)
  - DRUG INEFFECTIVE [None]
